FAERS Safety Report 6491669-9 (Version None)
Quarter: 2009Q4

REPORT INFORMATION
  Report Type: 
  Country: None (occurrence: None)
  Receive Date: 20091211
  Receipt Date: 20091203
  Transmission Date: 20100525
  Serious: Yes (Hospitalization, Disabling)
  Sender: FDA-Public Use
  Company Number: US-MERCK-0906USA03786

PATIENT
  Age: 49 Year
  Sex: Female

DRUGS (3)
  1. FOSAMAX [Suspect]
     Indication: OSTEOPOROSIS
     Route: 048
     Dates: end: 20030301
  2. FOSAMAX [Suspect]
     Route: 048
     Dates: start: 20030301, end: 20060601
  3. FOSAMAX PLUS D [Suspect]
     Indication: OSTEOPOROSIS
     Route: 048
     Dates: start: 20060807, end: 20070701

REACTIONS (23)
  - ANXIETY [None]
  - ARTHRITIS [None]
  - BONE DISORDER [None]
  - BRONCHITIS [None]
  - CHEST PAIN [None]
  - CHRONIC OBSTRUCTIVE PULMONARY DISEASE [None]
  - CONTUSION [None]
  - COUGH [None]
  - CYST [None]
  - DENTAL CARIES [None]
  - DEPRESSION [None]
  - FALL [None]
  - FRACTURE [None]
  - HEADACHE [None]
  - JAW DISORDER [None]
  - JOINT INJURY [None]
  - OSTEOMYELITIS [None]
  - OSTEONECROSIS [None]
  - PAIN [None]
  - PAIN IN EXTREMITY [None]
  - PERIODONTAL DISEASE [None]
  - PNEUMONIA [None]
  - ROAD TRAFFIC ACCIDENT [None]
